FAERS Safety Report 18934978 (Version 1)
Quarter: 2021Q1

REPORT INFORMATION
  Report Type: Spontaneous
  Country: US (occurrence: US)
  Receive Date: 20210224
  Receipt Date: 20210224
  Transmission Date: 20210420
  Serious: No
  Sender: FDA-Public Use
  Company Number: US-BAYER-2021-072781

PATIENT
  Age: 66 Year
  Sex: Female
  Weight: 86.17 kg

DRUGS (8)
  1. XANAX [Concomitant]
     Active Substance: ALPRAZOLAM
     Indication: SLEEP DISORDER THERAPY
  2. VITAMINS NOS [Concomitant]
     Active Substance: VITAMINS
  3. L METHYLFOLATE [Concomitant]
     Active Substance: LEVOMEFOLIC ACID
  4. COVID?19 VACCINE NOS. [Suspect]
     Active Substance: COVID-19 VACCINE NOS
     Dosage: UNK
     Dates: start: 20210203
  5. CALCIUM [Concomitant]
     Active Substance: CALCIUM
  6. STATIN [SIMVASTATIN] [Concomitant]
     Active Substance: SIMVASTATIN
  7. CLARITIN [Suspect]
     Active Substance: LORATADINE
     Dosage: UNK
     Dates: start: 20210203
  8. VITAMIN B12 [Concomitant]
     Active Substance: CYANOCOBALAMIN
     Dosage: UNK UNK, QD

REACTIONS (6)
  - Diarrhoea [Recovered/Resolved]
  - Chills [None]
  - Pain [Not Recovered/Not Resolved]
  - Nausea [None]
  - Gastrointestinal disorder [None]
  - Pain in extremity [Recovered/Resolved]

NARRATIVE: CASE EVENT DATE: 202102
